FAERS Safety Report 7179161-X (Version None)
Quarter: 2010Q4

REPORT INFORMATION
  Report Type: 
  Country: None (occurrence: None)
  Receive Date: 20101221
  Receipt Date: 20101213
  Transmission Date: 20110411
  Serious: Yes (Life-Threatening)
  Sender: FDA-Public Use
  Company Number: AU-JNJFOC-20101206331

PATIENT
  Age: 61 Year
  Sex: Female

DRUGS (3)
  1. TRAMADOL HYDROCHLORIDE [Suspect]
     Indication: ILL-DEFINED DISORDER
     Route: 048
  2. DOXEPIN HYDROCHLORIDE [Concomitant]
     Indication: SLEEP DISORDER
     Route: 065
  3. EFFEXOR [Concomitant]
     Indication: DEPRESSION
     Route: 065

REACTIONS (9)
  - AGGRESSION [None]
  - AGITATION [None]
  - ANGER [None]
  - DEPERSONALISATION [None]
  - DEPRESSED MOOD [None]
  - HOMICIDAL IDEATION [None]
  - SCREAMING [None]
  - SOMNOLENCE [None]
  - SUICIDAL IDEATION [None]
